FAERS Safety Report 11633414 (Version 1)
Quarter: 2015Q4

REPORT INFORMATION
  Report Type: Spontaneous
  Country: US (occurrence: US)
  Receive Date: 20151015
  Receipt Date: 20151015
  Transmission Date: 20160304
  Serious: Yes (Other)
  Sender: FDA-Public Use
  Company Number: US-PFIZER INC-2015344120

PATIENT
  Age: 27 Year
  Sex: Female

DRUGS (2)
  1. DEPO-PROVERA [Suspect]
     Active Substance: MEDROXYPROGESTERONE ACETATE
     Dosage: UNK
  2. NORTHERA [Interacting]
     Active Substance: DROXIDOPA
     Dosage: UNK, (3-4 TIMES PER DAY)

REACTIONS (5)
  - Headache [Unknown]
  - Drug interaction [Unknown]
  - Heart rate increased [Unknown]
  - Mental impairment [Unknown]
  - Muscle spasms [Unknown]
